FAERS Safety Report 16074998 (Version 1)
Quarter: 2019Q1

REPORT INFORMATION
  Report Type: Spontaneous
  Country: AT (occurrence: AT)
  Receive Date: 20190315
  Receipt Date: 20190315
  Transmission Date: 20190418
  Serious: Yes (Death)
  Sender: FDA-Public Use
  Company Number: AT-ROCHE-2270598

PATIENT
  Age: 56 Year
  Sex: Male

DRUGS (2)
  1. GAZYVARO [Suspect]
     Active Substance: OBINUTUZUMAB
     Indication: B-CELL LYMPHOMA
     Dosage: FIRST LINE
     Route: 065
  2. BENDAMUSTINE [Suspect]
     Active Substance: BENDAMUSTINE
     Indication: B-CELL LYMPHOMA
     Dosage: FIRST LINE
     Route: 065

REACTIONS (6)
  - Blood bilirubin increased [Unknown]
  - Acute hepatic failure [Fatal]
  - Transaminases increased [Unknown]
  - Beta 2 microglobulin increased [Unknown]
  - Hepatitis B reactivation [Fatal]
  - Blood lactate dehydrogenase increased [Unknown]
